FAERS Safety Report 4310848-X (Version None)
Quarter: 2004Q1

REPORT INFORMATION
  Report Type: 
  Country: None (occurrence: None)
  Receive Date: 20040302
  Receipt Date: 20040224
  Transmission Date: 20041129
  Serious: Yes (Other)
  Sender: FDA-Public Use
  Company Number: 2004200834AT

PATIENT
  Age: 71 Year
  Sex: Female

DRUGS (5)
  1. CELEBREX [Suspect]
     Indication: POLYARTHRITIS
     Dosage: 100 MG, QD, ORAL
     Route: 048
     Dates: start: 20020816
  2. MARCOUMAR [Concomitant]
  3. DETRUSITOL IR (TOLTERODINE) TABLET [Concomitant]
  4. LITHIUM CARBONATE [Concomitant]
  5. ANTIDEPRESSANTS [Concomitant]

REACTIONS (1)
  - PROTHROMBIN TIME PROLONGED [None]
